FAERS Safety Report 4426850-3 (Version None)
Quarter: 2004Q3

REPORT INFORMATION
  Report Type: 
  Country: None (occurrence: None)
  Receive Date: 20040816
  Receipt Date: 20040811
  Transmission Date: 20050211
  Serious: Yes (Disabling)
  Sender: FDA-Public Use
  Company Number: PHBS2004JP10546

PATIENT
  Age: 62 Year
  Sex: Male

DRUGS (6)
  1. STARSIS #AJ [Suspect]
     Indication: DIABETES MELLITUS
     Dosage: 270 MG/DAY
     Route: 048
     Dates: start: 20020703
  2. ADALAT [Concomitant]
     Dosage: 40 MG/DAY
     Dates: start: 20010626
  3. MAINTATE [Concomitant]
     Dosage: 2.5 MG/DAY
     Dates: start: 20010626
  4. BLOPRESS [Concomitant]
     Dosage: 8 MG/DAY
     Dates: start: 20010626
  5. EPL [Concomitant]
     Dosage: 6 DF/DAY
     Dates: start: 20020426
  6. URSO [Concomitant]
     Dosage: 600 MG/DAY
     Dates: start: 20020426

REACTIONS (1)
  - HEPATIC FUNCTION ABNORMAL [None]
